FAERS Safety Report 25235743 (Version 1)
Quarter: 2025Q2

REPORT INFORMATION
  Report Type: Spontaneous
  Country: IN (occurrence: IN)
  Receive Date: 20250424
  Receipt Date: 20250424
  Transmission Date: 20250716
  Serious: Yes (Death, Hospitalization, Other)
  Sender: SANOFI AVENTIS
  Company Number: IN-DialogSolutions-SAAVPROD-PI761777-C5

PATIENT
  Age: 28 Year
  Sex: Male

DRUGS (3)
  1. ANTI-THYMOCYTE GLOBULIN (RABBIT) NOS [Suspect]
     Active Substance: LAPINE T-LYMPHOCYTE IMMUNE GLOBULIN
     Indication: Renal and pancreas transplant
     Dates: start: 202201
  2. MYCOPHENOLATE MOFETIL [Suspect]
     Active Substance: MYCOPHENOLATE MOFETIL
     Indication: Renal and pancreas transplant
     Dates: start: 202201
  3. TACROLIMUS [Suspect]
     Active Substance: TACROLIMUS
     Indication: Renal and pancreas transplant
     Route: 048
     Dates: start: 202201

REACTIONS (8)
  - COVID-19 [Fatal]
  - Cough [Fatal]
  - Pyrexia [Fatal]
  - Dyspnoea [Fatal]
  - Renal and pancreas transplant rejection [Fatal]
  - Abdominal distension [Fatal]
  - Respiratory failure [Fatal]
  - Klebsiella urinary tract infection [Recovered/Resolved]

NARRATIVE: CASE EVENT DATE: 20220101
